FAERS Safety Report 7389420-3 (Version None)
Quarter: 2011Q2

REPORT INFORMATION
  Report Type: 
  Country: None (occurrence: None)
  Receive Date: 20110401
  Receipt Date: 20110330
  Transmission Date: 20111010
  Serious: Yes (Other)
  Sender: FDA-Public Use
  Company Number: CHPA2011US04636

PATIENT
  Age: 4 Year
  Sex: Male

DRUGS (1)
  1. EX-LAX CHOCOLATE PIECES [Suspect]
     Dosage: APPROXIMATELY 18 PIECES, ONCE/SINGLE
     Route: 048

REACTIONS (17)
  - WOUND [None]
  - SKIN EXFOLIATION [None]
  - EXCORIATION [None]
  - MUSCULOSKELETAL PAIN [None]
  - TENDERNESS [None]
  - ERYTHEMA [None]
  - PAIN [None]
  - THERMAL BURN [None]
  - RASH [None]
  - DIARRHOEA [None]
  - ACCIDENTAL OVERDOSE [None]
  - SECRETION DISCHARGE [None]
  - DERMATITIS [None]
  - CRYING [None]
  - BLISTER [None]
  - ACCIDENTAL DRUG INTAKE BY CHILD [None]
  - ABDOMINAL PAIN [None]
